FAERS Safety Report 8201474-0 (Version None)
Quarter: 2012Q1

REPORT INFORMATION
  Report Type: 
  Country: None (occurrence: None)
  Receive Date: 20120312
  Receipt Date: 20120308
  Transmission Date: 20120608
  Serious: Yes (Life-Threatening, Disabling)
  Sender: FDA-Public Use
  Company Number: AT-B.I. PHARMACEUTICALS,INC./RIDGEFIELD-2012-AP-00003AP

PATIENT
  Sex: Male
  Weight: 115 kg

DRUGS (8)
  1. PRADAXA [Suspect]
     Dosage: 300 MG
     Route: 048
  2. LEVOTHYROXINE SODIUM [Concomitant]
     Dosage: 0.1 MG
     Route: 048
  3. INDAPAMID [Concomitant]
     Dosage: 1.5 MG
     Route: 048
  4. DIOVAN HCT [Concomitant]
     Dosage: 160/25 MG; 1-0-0
     Route: 048
  5. UROSIN [Concomitant]
     Dosage: 300 MG
     Route: 048
  6. PRADAXA [Suspect]
     Indication: ATRIAL FIBRILLATION
     Dosage: 220 MG
     Route: 048
     Dates: start: 20100601, end: 20120105
  7. DIGITOXIN TAB [Concomitant]
     Dosage: 0.1 MG
     Route: 048
  8. NEBIVOLOL [Concomitant]
     Dosage: 5 MG
     Route: 048

REACTIONS (1)
  - ISCHAEMIC STROKE [None]
